FAERS Safety Report 13481906 (Version 2)
Quarter: 2017Q3

REPORT INFORMATION
  Report Type: Spontaneous
  Country: US (occurrence: US)
  Receive Date: 20170426
  Receipt Date: 20170807
  Transmission Date: 20171127
  Serious: No
  Sender: FDA-Public Use
  Company Number: US-ASTRAZENECA-2017SE42722

PATIENT
  Age: 932 Month
  Sex: Female
  Weight: 88 kg

DRUGS (3)
  1. TUDORZA PRESSAIR [Suspect]
     Active Substance: ACLIDINIUM BROMIDE
     Indication: CHRONIC OBSTRUCTIVE PULMONARY DISEASE
     Dosage: 400MCG, ONE INHALATION TWICE DAILY
     Route: 055
     Dates: start: 2015
  2. LEVOTHYROXINE. [Concomitant]
     Active Substance: LEVOTHYROXINE
     Indication: HYPERTENSION
  3. SYMBICORT [Suspect]
     Active Substance: BUDESONIDE\FORMOTEROL FUMARATE DIHYDRATE
     Indication: CHRONIC OBSTRUCTIVE PULMONARY DISEASE
     Dosage: 160/4.5MCG TWO INHALATIONS TWICE DAILY
     Route: 055
     Dates: start: 2014

REACTIONS (7)
  - Cough [Recovered/Resolved with Sequelae]
  - Feeling abnormal [Unknown]
  - Nasopharyngitis [Recovered/Resolved with Sequelae]
  - Gait disturbance [Unknown]
  - Wrong technique in product usage process [Unknown]
  - Device failure [Unknown]
  - Dyspnoea [Unknown]

NARRATIVE: CASE EVENT DATE: 201703
